FAERS Safety Report 11551727 (Version 1)
Quarter: 2015Q3

REPORT INFORMATION
  Report Type: Spontaneous
  Country: DE (occurrence: DE)
  Receive Date: 20150925
  Receipt Date: 20150925
  Transmission Date: 20151125
  Serious: Yes (Other)
  Sender: FDA-Public Use
  Company Number: DE-ROCHE-1637282

PATIENT
  Age: 36 Year
  Sex: Male

DRUGS (7)
  1. CRIZOTINIB [Concomitant]
     Active Substance: CRIZOTINIB
  2. CARBOPLATIN. [Concomitant]
     Active Substance: CARBOPLATIN
     Indication: NON-SMALL CELL LUNG CANCER
     Dosage: 2 CYCLES IN TOTAL
     Route: 065
     Dates: end: 201103
  3. AVASTIN [Suspect]
     Active Substance: BEVACIZUMAB
     Indication: NON-SMALL CELL LUNG CANCER
     Dosage: 2 CYCLES IN TOTAL
     Route: 065
     Dates: end: 201103
  4. LDK378 [Concomitant]
     Active Substance: CERITINIB
     Route: 065
     Dates: end: 201305
  5. CISPLATINE [Concomitant]
     Active Substance: CISPLATIN
  6. ALIMTA [Concomitant]
     Active Substance: PEMETREXED DISODIUM
  7. TAXOL [Concomitant]
     Active Substance: PACLITAXEL
     Indication: NON-SMALL CELL LUNG CANCER
     Dosage: 2 CYCLES IN TOTAL
     Route: 065
     Dates: end: 201103

REACTIONS (3)
  - Cough [Unknown]
  - Pleural effusion [Unknown]
  - General physical health deterioration [Unknown]

NARRATIVE: CASE EVENT DATE: 201103
